FAERS Safety Report 4635169-7 (Version None)
Quarter: 2005Q2

REPORT INFORMATION
  Report Type: 
  Country: None (occurrence: None)
  Receive Date: 20050414
  Receipt Date: 20050407
  Transmission Date: 20051028
  Serious: Yes (Hospitalization)
  Sender: FDA-Public Use
  Company Number: FR-GLAXOSMITHKLINE-B0377416A

PATIENT
  Age: 54 Year
  Sex: Male

DRUGS (4)
  1. AUGMENTIN [Suspect]
     Indication: RESPIRATORY DISORDER
     Dosage: 6G PER DAY
     Route: 048
     Dates: start: 20041126
  2. PYOSTACINE [Suspect]
     Route: 048
     Dates: start: 20041118, end: 20041126
  3. KETEK [Suspect]
     Indication: RESPIRATORY DISORDER
     Dosage: 2UNIT PER DAY
     Route: 048
     Dates: start: 20041029, end: 20041118
  4. OFLOCET [Concomitant]
     Route: 065

REACTIONS (4)
  - DERMATITIS EXFOLIATIVE [None]
  - DRUG RASH WITH EOSINOPHILIA AND SYSTEMIC SYMPTOMS [None]
  - GENERALISED ERYTHEMA [None]
  - RESPIRATORY DISTRESS [None]
